FAERS Safety Report 10465971 (Version 1)
Quarter: 2014Q3

REPORT INFORMATION
  Report Type: Spontaneous
  Country: BR (occurrence: BR)
  Receive Date: 20140922
  Receipt Date: 20140922
  Transmission Date: 20150326
  Serious: Yes (Hospitalization, Other)
  Sender: FDA-Public Use
  Company Number: BR-ROCHE-1462979

PATIENT
  Age: 78 Year
  Sex: Female
  Weight: 68.5 kg

DRUGS (2)
  1. RIVOTRIL [Suspect]
     Active Substance: CLONAZEPAM
     Indication: INSOMNIA
     Route: 048
     Dates: start: 2006
  2. PURAN [Concomitant]
     Active Substance: LEVOTHYROXINE SODIUM

REACTIONS (6)
  - Labile blood pressure [Recovering/Resolving]
  - Renal atrophy [Not Recovered/Not Resolved]
  - Intervertebral disc protrusion [Not Recovered/Not Resolved]
  - Coma [Unknown]
  - Agnosia [Not Recovered/Not Resolved]
  - Myocardial oedema [Not Recovered/Not Resolved]
